FAERS Safety Report 11073052 (Version 2)
Quarter: 2015Q2

REPORT INFORMATION
  Report Type: Spontaneous
  Country: JP (occurrence: JP)
  Receive Date: 20150428
  Receipt Date: 20150610
  Transmission Date: 20150821
  Serious: Yes (Hospitalization)
  Sender: FDA-Public Use
  Company Number: JP-GLAXOSMITHKLINE-JP2015JPN054900

PATIENT
  Age: 52 Year
  Sex: Female

DRUGS (8)
  1. ABILIFY [Concomitant]
     Active Substance: ARIPIPRAZOLE
  2. ROHYPNOL [Concomitant]
     Active Substance: FLUNITRAZEPAM
  3. LENDORMIN [Concomitant]
     Active Substance: BROTIZOLAM
  4. DEPAKENE [Concomitant]
     Active Substance: VALPROIC ACID
  5. KEPPRA [Concomitant]
     Active Substance: LEVETIRACETAM
  6. TEGRETOL [Concomitant]
     Active Substance: CARBAMAZEPINE
  7. VEGETAMIN-A [Concomitant]
     Active Substance: CHLORPROMAZINE\PROMETHAZINE
  8. LAMICTAL [Suspect]
     Active Substance: LAMOTRIGINE
     Dosage: 700 MG, QD
     Route: 048
     Dates: start: 20150420

REACTIONS (1)
  - Overdose [Recovering/Resolving]

NARRATIVE: CASE EVENT DATE: 20150420
